FAERS Safety Report 5308159-9 (Version None)
Quarter: 2007Q2

REPORT INFORMATION
  Report Type: 
  Country: None (occurrence: None)
  Receive Date: 20070426
  Receipt Date: 20070424
  Transmission Date: 20071010
  Serious: Yes (Life-Threatening)
  Sender: FDA-Public Use
  Company Number: PHBS2007SG07117

PATIENT
  Age: 75 Year
  Sex: Male

DRUGS (9)
  1. DILTIAZEM [Concomitant]
     Dosage: 60 MG, QD
  2. DIGOXIN [Concomitant]
     Dosage: 0.625 MG, QD
  3. MADOPAR [Concomitant]
     Dosage: 62.5 MG, QD
  4. MADOPAR HBS [Concomitant]
     Dosage: 625 MG/D
  5. BROMOCRIPTINE MESYLATE [Concomitant]
     Dosage: 7.5 MG, QD
  6. SELEGILINE HCL [Concomitant]
     Dosage: 5 MG, BID
  7. WARFARIN [Concomitant]
  8. NEXIUM [Concomitant]
     Dosage: 40 MG, QD
  9. ZELNORM [Suspect]
     Indication: IRRITABLE BOWEL SYNDROME
     Dosage: 6 MG, QD
     Route: 048
     Dates: start: 20060516

REACTIONS (6)
  - CIRCULATORY COLLAPSE [None]
  - DIZZINESS [None]
  - FALL [None]
  - HEART RATE DECREASED [None]
  - HYPOTENSION [None]
  - RESUSCITATION [None]
